FAERS Safety Report 22114808 (Version 1)
Quarter: 2023Q1

REPORT INFORMATION
  Report Type: Spontaneous
  Country: US (occurrence: US)
  Receive Date: 20230320
  Receipt Date: 20230320
  Transmission Date: 20230417
  Serious: No
  Sender: FDA-Public Use
  Company Number: US-SA-SAC20230320000146

PATIENT
  Sex: Female
  Weight: 85.2 kg

DRUGS (8)
  1. DUPIXENT [Suspect]
     Active Substance: DUPILUMAB
     Indication: Psoriasis
     Dosage: 300 MG, QOW
     Route: 058
  2. BIOTIN [Concomitant]
     Active Substance: BIOTIN
     Dosage: UNKNOWN
  3. VITAMIN D NOS [Concomitant]
     Active Substance: VITAMIN D NOS
     Dosage: UNKNOWN
  4. ESTRADIOL [Concomitant]
     Active Substance: ESTRADIOL
     Dosage: UNKNOWN
  5. NORTRIPTYLINE HYDROCHLORIDE [Concomitant]
     Active Substance: NORTRIPTYLINE HYDROCHLORIDE
     Dosage: UNKNOWN
  6. ATENOLOL [Concomitant]
     Active Substance: ATENOLOL
     Dosage: UNKNOWN
  7. DIAZEPAM [Concomitant]
     Active Substance: DIAZEPAM
     Dosage: UNKNOWN
  8. ASCORBIC ACID [Concomitant]
     Active Substance: ASCORBIC ACID
     Dosage: UNKNOWN

REACTIONS (2)
  - Injection site reaction [Recovered/Resolved]
  - Product use in unapproved indication [Unknown]
